FAERS Safety Report 6036147-6 (Version None)
Quarter: 2009Q1

REPORT INFORMATION
  Report Type: 
  Country: None (occurrence: None)
  Receive Date: 20090113
  Receipt Date: 20081231
  Transmission Date: 20090719
  Serious: Yes (Other)
  Sender: FDA-Public Use
  Company Number: US-PFIZER INC-2009150834

PATIENT
  Sex: Female
  Weight: 74.83 kg

DRUGS (3)
  1. CHANTIX [Suspect]
     Indication: SMOKING CESSATION THERAPY
     Dosage: 0.5 MG, 2X/DAY
     Route: 048
     Dates: start: 20060101
  2. RAMIPRIL [Concomitant]
     Dosage: UNK
     Route: 048
  3. FLUOXETINE HYDROCHLORIDE [Concomitant]
     Dosage: UNK
     Route: 048

REACTIONS (3)
  - DEPRESSION [None]
  - PARANOIA [None]
  - VIOLENCE-RELATED SYMPTOM [None]
